FAERS Safety Report 13286761 (Version 2)
Quarter: 2017Q2

REPORT INFORMATION
  Report Type: Spontaneous
  Country: FR (occurrence: FR)
  Receive Date: 20170302
  Receipt Date: 20170410
  Transmission Date: 20170830
  Serious: Yes (Hospitalization)
  Sender: FDA-Public Use
  Company Number: FR-PFIZER INC-2017084985

PATIENT
  Age: 82 Year
  Sex: Female

DRUGS (18)
  1. REVLIMID [Suspect]
     Active Substance: LENALIDOMIDE
     Dosage: 20 MG, 1X/DAY EVERY 21-DAY-CYCLE
     Route: 048
     Dates: start: 20170102, end: 20170122
  2. DECTANCYL [Suspect]
     Active Substance: DEXAMETHASONE
     Dosage: 20 MG, 1X/DAY
     Route: 048
     Dates: start: 20160916, end: 20170206
  3. FORLAX [Concomitant]
     Active Substance: POLYETHYLENE GLYCOL 4000
  4. REVLIMID [Suspect]
     Active Substance: LENALIDOMIDE
     Indication: PLASMA CELL MYELOMA
     Dosage: 20 MG, 1X/DAY EVERY 21-DAY-CYCLE
     Route: 048
     Dates: start: 20160917, end: 20161006
  5. SPECIAFOLDINE [Concomitant]
     Active Substance: FOLIC ACID
  6. KARDEGIC [Concomitant]
     Active Substance: ASPIRIN LYSINE
     Dosage: 75 MG, DAILY
     Dates: start: 20170102
  7. DECTANCYL [Suspect]
     Active Substance: DEXAMETHASONE
     Indication: PLASMA CELL MYELOMA
     Dosage: UNK UNK, 2X/WEEK
     Dates: start: 20160729, end: 20160829
  8. DOLIPRANE [Concomitant]
     Active Substance: ACETAMINOPHEN
  9. LOVENOX [Concomitant]
     Active Substance: ENOXAPARIN SODIUM
     Indication: PROPHYLAXIS
     Dosage: UNK
     Dates: start: 20160722, end: 20170102
  10. FORTIMEL [Concomitant]
     Active Substance: DIETARY SUPPLEMENT
  11. REVLIMID [Suspect]
     Active Substance: LENALIDOMIDE
     Dosage: 20 MG, 1X/DAY EVERY 21-DAY-CYCLE
     Route: 048
     Dates: start: 20161015, end: 20161105
  12. ZELITREX [Concomitant]
     Active Substance: VALACYCLOVIR HYDROCHLORIDE
  13. BACTRIM [Concomitant]
     Active Substance: SULFAMETHOXAZOLE\TRIMETHOPRIM
  14. CLAMOXYL /00249601/ [Concomitant]
     Active Substance: AMOXICILLIN
  15. ZOLEDRONIC ACID [Suspect]
     Active Substance: ZOLEDRONIC ACID
     Indication: PLASMA CELL MYELOMA
     Dosage: 1 DF, MONTHLY
     Route: 042
     Dates: start: 20160729, end: 20170130
  16. REVLIMID [Suspect]
     Active Substance: LENALIDOMIDE
     Dosage: 20 MG, 1X/DAY EVERY 21-DAY-CYCLE
     Route: 048
     Dates: start: 20161110, end: 20161201
  17. REVLIMID [Suspect]
     Active Substance: LENALIDOMIDE
     Dosage: 20 MG, 1X/DAY EVERY 21-DAY-CYCLE
     Route: 048
     Dates: start: 20161209, end: 20161230
  18. REVLIMID [Suspect]
     Active Substance: LENALIDOMIDE
     Dosage: 20 MG, 1X/DAY EVERY 21-DAY-CYCLE
     Route: 048
     Dates: start: 20170130, end: 20170206

REACTIONS (1)
  - Deep vein thrombosis [Recovering/Resolving]

NARRATIVE: CASE EVENT DATE: 20170206
